FAERS Safety Report 20578667 (Version 1)
Quarter: 2022Q1

REPORT INFORMATION
  Report Type: Spontaneous
  Country: NL (occurrence: NL)
  Receive Date: 20220310
  Receipt Date: 20220310
  Transmission Date: 20220423
  Serious: Yes (Other)
  Sender: FDA-Public Use
  Company Number: None

PATIENT
  Age: 62 Year
  Sex: Male
  Weight: 86.3 kg

DRUGS (6)
  1. AMOXICILLIN\CLAVULANIC ACID [Suspect]
     Active Substance: AMOXICILLIN\CLAVULANIC ACID
     Indication: Cholecystitis acute
     Dosage: 4 DOSAGE FORMS DAILY; INJPDR 1000/200MG / BRAND NAME NOT SPECIFIED, THERAPY END DATE : ASKED BUT UNK
     Dates: start: 20220110
  2. ACETAMINOPHEN [Concomitant]
     Active Substance: ACETAMINOPHEN
     Dosage: 500 MG (MILLIGRAM), ,  BRAND NAME NOT SPECIFIED, THERAPY START DATE  AND  THERAPY END DATE : ASKED
  3. POTASSIUM CHLORIDE [Concomitant]
     Active Substance: POTASSIUM CHLORIDE
     Dosage: 149 MG/ML (MILLIGRAMS PER MILLILITER), INFCONC STRENGTH :  149 MG/ML (2MMOL/ML) / BRAND NAME NOT SPE
     Dates: end: 2022
  4. URSODIOL [Concomitant]
     Active Substance: URSODIOL
     Dosage: 300 MG (MILLIGRAM), STRENGTH : 300 MG/ BRAND NAME NOT SPECIFIED, THERAPY START DATE  AND  THERAPY EN
  5. NADROPARIN CALCIUM [Concomitant]
     Active Substance: NADROPARIN CALCIUM
     Dosage: INJECTION FLUID,  9500 IU/ML (UNITS PER MILLILITER),NADROPARINE INJVLST 9500IE/ML / FRAXIPARINE INJV
  6. MORPHINE [Concomitant]
     Active Substance: MORPHINE
     Dosage: INFUSION FLUID, 10 MG/ML (MILLIGRAMS PER MILLILITER),INFVLST / BRAND NAME NOT SPECIFIED, THERAPY STA

REACTIONS (1)
  - Drug reaction with eosinophilia and systemic symptoms [Recovering/Resolving]

NARRATIVE: CASE EVENT DATE: 20220202
